FAERS Safety Report 9065621 (Version 1)
Quarter: 2013Q1

REPORT INFORMATION
  Report Type: Report from Study
  Country: US (occurrence: US)
  Receive Date: 20130130
  Receipt Date: 20130130
  Transmission Date: 20140127
  Serious: No
  Sender: FDA-Public Use
  Company Number: US-ABBOTT-12P-163-0976050-00

PATIENT
  Age: 65 Year
  Sex: Female

DRUGS (14)
  1. HUMIRA [Suspect]
     Indication: PSORIATIC ARTHROPATHY
     Dates: start: 200803
  2. HUMIRA [Suspect]
  3. CYMBALTA [Concomitant]
     Indication: DEPRESSION
  4. CYMBALTA [Concomitant]
     Indication: FIBROMYALGIA
  5. PRIMADONE [Concomitant]
     Indication: ESSENTIAL TREMOR
  6. PRILOSEC [Concomitant]
     Indication: GASTROOESOPHAGEAL REFLUX DISEASE
  7. SYMBICORT [Concomitant]
     Indication: ASTHMA
     Dosage: 80/MG/4.5MG
     Route: 055
  8. LASIX [Concomitant]
     Indication: HYPERTENSION
     Dosage: IN AM
  9. NEURONTIN [Concomitant]
     Indication: NEUROPATHY PERIPHERAL
  10. ZANAFLEX [Concomitant]
     Indication: MYALGIA
     Dosage: AT BEDTIME
  11. ALPRAZOLAM [Concomitant]
     Indication: ANXIETY
     Dosage: AT BEDTIME
  12. PLAVIX [Concomitant]
     Indication: BLOOD CHOLESTEROL INCREASED
     Dosage: AT BEDTIME
  13. PRAVASTATIN [Concomitant]
     Indication: BLOOD CHOLESTEROL INCREASED
  14. CLOBETASOL [Concomitant]
     Indication: PSORIASIS
     Route: 061

REACTIONS (3)
  - Incorrect dose administered [Recovering/Resolving]
  - Injection site pain [Recovering/Resolving]
  - Arthralgia [Recovering/Resolving]
